FAERS Safety Report 23270161 (Version 1)
Quarter: 2023Q4

REPORT INFORMATION
  Report Type: Spontaneous
  Country: BG (occurrence: BG)
  Receive Date: 20231207
  Receipt Date: 20231207
  Transmission Date: 20240110
  Serious: Yes (Hospitalization)
  Sender: FDA-Public Use
  Company Number: BG-TEVA-2023-BG-2949114

PATIENT
  Age: 55 Year
  Sex: Female
  Weight: 74 kg

DRUGS (2)
  1. LETROZOLE [Suspect]
     Active Substance: LETROZOLE
     Indication: Product used for unknown indication
     Dosage: 2.5 MG, QD (5 MILLIGRAM DAILY))
     Route: 048
     Dates: start: 20231023
  2. OXYCODONE [Suspect]
     Active Substance: OXYCODONE
     Indication: Back pain
     Dosage: 20 MG, QD (60 MILLIGRAM DAILY)
     Route: 048
     Dates: start: 202303

REACTIONS (4)
  - Dyspnoea [Recovered/Resolved]
  - Anaemia [Recovered/Resolved]
  - Asthenia [Recovered/Resolved]
  - Back pain [Recovered/Resolved]

NARRATIVE: CASE EVENT DATE: 20231109
